FAERS Safety Report 7539792-1 (Version None)
Quarter: 2011Q2

REPORT INFORMATION
  Report Type: 
  Country: None (occurrence: None)
  Receive Date: 20110610
  Receipt Date: 20110606
  Transmission Date: 20111010
  Serious: Yes (Life-Threatening, Hospitalization)
  Sender: FDA-Public Use
  Company Number: PHHY2011FR49195

PATIENT
  Sex: Male

DRUGS (18)
  1. JANUVIA [Concomitant]
  2. TEVA [Concomitant]
     Indication: PROSTATITIS
     Dosage: UNK
     Dates: start: 20110419
  3. AUGMENTIN '125' [Concomitant]
     Dosage: UNK
     Dates: start: 20110401
  4. BACTRIM [Concomitant]
     Dosage: UNK
     Dates: end: 20110502
  5. REPAGLINIDE [Concomitant]
  6. LERCANIDIPINE [Concomitant]
  7. VOLTAREN [Suspect]
     Indication: TENDONITIS
     Dosage: 100 MG, UNK
     Route: 048
     Dates: start: 20110428, end: 20110502
  8. PANTOPRAZOLE SODIUM [Concomitant]
  9. AMLODIPINE [Concomitant]
  10. OLMESARTAN MEDOXOMIL [Concomitant]
     Dosage: UNK
     Dates: start: 20110508
  11. ALLOPURINOL [Concomitant]
  12. ATORVASTATIN [Concomitant]
     Dosage: UNK
     Dates: start: 20110507
  13. FUROSEMIDE [Concomitant]
  14. PHYSIOTENS [Concomitant]
  15. TORENTAL [Concomitant]
  16. OFLOXACIN [Concomitant]
     Indication: PROSTATITIS
     Dosage: UNK
     Dates: start: 20110419, end: 20110428
  17. INSULIN [Concomitant]
  18. LASIX [Concomitant]
     Dosage: UNK
     Dates: start: 20110510

REACTIONS (7)
  - PARAESTHESIA [None]
  - RENAL FAILURE ACUTE [None]
  - DIARRHOEA [None]
  - PAIN IN EXTREMITY [None]
  - BRADYCARDIA [None]
  - HYPERKALAEMIA [None]
  - DYSPNOEA [None]
